FAERS Safety Report 4340776-5 (Version None)
Quarter: 2004Q2

REPORT INFORMATION
  Report Type: 
  Country: None (occurrence: None)
  Receive Date: 20040413
  Receipt Date: 20040331
  Transmission Date: 20050107
  Serious: Yes (Hospitalization, Other)
  Sender: FDA-Public Use
  Company Number: 2004009465

PATIENT
  Age: 39 Year
  Sex: Male
  Weight: 117.9352 kg

DRUGS (5)
  1. GEODON [Suspect]
     Indication: ILL-DEFINED DISORDER
     Dosage: 20 MG (DAILY), ORAL
     Route: 048
     Dates: start: 20040210, end: 20040211
  2. CYCLOSPORINE [Concomitant]
  3. AZATHIOPRINE [Concomitant]
  4. PREDNISONE [Concomitant]
  5. ALL OTHER THERAPEUTIC PRODUCTS (ALL OTHER THERAPEUTIC PRODUCTS) [Concomitant]

REACTIONS (4)
  - CHEST X-RAY ABNORMAL [None]
  - IDIOSYNCRATIC DRUG REACTION [None]
  - INFLUENZA [None]
  - RESPIRATORY DISORDER [None]
